FAERS Safety Report 13843577 (Version 1)
Quarter: 2017Q3

REPORT INFORMATION
  Report Type: Report from Study
  Country: US (occurrence: US)
  Receive Date: 20170808
  Receipt Date: 20170808
  Transmission Date: 20171127
  Serious: Yes (Other)
  Sender: FDA-Public Use
  Company Number: US-PFIZER INC-2017339001

PATIENT
  Age: 31 Year
  Sex: Female

DRUGS (1)
  1. SUTENT [Suspect]
     Active Substance: SUNITINIB MALATE
     Indication: ALVEOLAR SOFT PART SARCOMA
     Dosage: 25 MG, DAILY
     Route: 048
     Dates: start: 20161201

REACTIONS (6)
  - Stomatitis [Unknown]
  - Bone marrow failure [Unknown]
  - Product use in unapproved indication [Unknown]
  - Dysgeusia [Unknown]
  - Palmar-plantar erythrodysaesthesia syndrome [Unknown]
  - Hepatotoxicity [Unknown]

NARRATIVE: CASE EVENT DATE: 20161201
